FAERS Safety Report 13528704 (Version 1)
Quarter: 2017Q2

REPORT INFORMATION
  Report Type: Report from Study
  Country: BR (occurrence: BR)
  Receive Date: 20170509
  Receipt Date: 20170509
  Transmission Date: 20170830
  Serious: Yes (Other)
  Sender: FDA-Public Use
  Company Number: PHHY2016BR180042

PATIENT
  Age: 35 Year
  Sex: Female
  Weight: 89 kg

DRUGS (8)
  1. COSENTYX [Suspect]
     Active Substance: SECUKINUMAB
     Indication: PSORIASIS
     Dosage: 300 MG, UNK
     Route: 058
     Dates: start: 20161208
  2. COSENTYX [Suspect]
     Active Substance: SECUKINUMAB
     Dosage: 300 MG, UNK
     Route: 058
     Dates: start: 20170119
  3. COSENTYX [Suspect]
     Active Substance: SECUKINUMAB
     Dosage: 300 MG, QMO
     Route: 058
     Dates: start: 20170330
  4. ACITRETIN. [Concomitant]
     Active Substance: ACITRETIN
     Indication: PRODUCT USED FOR UNKNOWN INDICATION
     Dosage: 10 MG, 28D
     Route: 065
  5. COSENTYX [Suspect]
     Active Substance: SECUKINUMAB
     Dosage: 300 MG, QMO
     Route: 058
     Dates: start: 20170302
  6. COSENTYX [Suspect]
     Active Substance: SECUKINUMAB
     Dosage: 300 MG, QMO
     Route: 058
     Dates: start: 20170302
  7. COSENTYX [Suspect]
     Active Substance: SECUKINUMAB
     Dosage: 300 MG, UNK
     Route: 058
     Dates: start: 20170112
  8. COSENTYX [Suspect]
     Active Substance: SECUKINUMAB
     Dosage: 300 MG, QMO
     Route: 058
     Dates: start: 20170202

REACTIONS (18)
  - Therapeutic response decreased [Unknown]
  - Dermatitis exfoliative [Recovering/Resolving]
  - Dermatitis contact [Not Recovered/Not Resolved]
  - Rubber sensitivity [Not Recovered/Not Resolved]
  - Skin exfoliation [Unknown]
  - Drug hypersensitivity [Unknown]
  - Myopia [Unknown]
  - Skin atrophy [Unknown]
  - Onychomadesis [Unknown]
  - Nail disorder [Unknown]
  - Erythema [Unknown]
  - Eyelid disorder [Unknown]
  - Skin swelling [Recovered/Resolved]
  - Dermatitis [Unknown]
  - Pruritus [Recovering/Resolving]
  - Skin wound [Unknown]
  - Hypokinesia [Unknown]
  - Psoriasis [Unknown]

NARRATIVE: CASE EVENT DATE: 20161214
